FAERS Safety Report 8478174-5 (Version None)
Quarter: 2012Q2

REPORT INFORMATION
  Report Type: 
  Country: None (occurrence: None)
  Receive Date: 20120629
  Receipt Date: 20120622
  Transmission Date: 20120825
  Serious: Yes (Other)
  Sender: FDA-Public Use
  Company Number: PHHY2012JP054324

PATIENT
  Sex: Male

DRUGS (3)
  1. ALLOPURINOL [Concomitant]
     Dosage: 100 MG,
     Route: 048
     Dates: start: 20100623
  2. LIPITOR [Concomitant]
     Dosage: 10 MG,
     Dates: start: 20100623
  3. TASIGNA [Suspect]
     Indication: CHRONIC MYELOID LEUKAEMIA
     Dosage: 400 MG,
     Route: 048
     Dates: start: 20100623

REACTIONS (1)
  - LIVER DISORDER [None]
